FAERS Safety Report 7279340-7 (Version None)
Quarter: 2011Q1

REPORT INFORMATION
  Report Type: 
  Country: None (occurrence: None)
  Receive Date: 20110207
  Receipt Date: 20110106
  Transmission Date: 20110831
  Serious: Yes (Death, Hospitalization, Other)
  Sender: FDA-Public Use
  Company Number: US-CELGENEUS-163-20785-10121623

PATIENT
  Sex: Male

DRUGS (30)
  1. PREDNISONE [Concomitant]
     Route: 048
  2. SODIUM CITRATE [Concomitant]
     Route: 048
  3. ADVAIR [Concomitant]
     Route: 055
  4. NORTRIPTYLINE [Concomitant]
     Route: 065
  5. AMLODIPINE [Concomitant]
     Route: 048
  6. MORPHINE SULFATE [Concomitant]
     Route: 065
  7. MORPHINE SULFATE [Concomitant]
     Route: 065
  8. SENOKOT [Concomitant]
     Route: 065
  9. MELATONIN [Concomitant]
     Route: 055
  10. VALIUM [Concomitant]
     Dosage: 5 TO 10MG
     Route: 065
  11. DOXORUBICIN [Concomitant]
     Route: 055
     Dates: start: 20101004
  12. HEPARIN [Concomitant]
     Dosage: 500 UNITS
     Route: 065
  13. COLACE [Concomitant]
     Route: 048
  14. MELPHALAN [Concomitant]
     Route: 065
  15. MS CONTIN [Concomitant]
     Route: 065
  16. FLOMAX [Concomitant]
     Route: 065
  17. OMEPRAZOLE [Concomitant]
     Route: 048
  18. SPIRIVA [Concomitant]
     Route: 065
  19. KAYEXALATE [Concomitant]
     Route: 065
  20. RENAVITE VITAMIN [Concomitant]
     Route: 065
  21. ASPIRIN [Concomitant]
     Route: 065
  22. PRILOSEC [Concomitant]
     Route: 065
  23. DEXAMETHASONE [Concomitant]
     Route: 065
  24. NEURONTIN [Concomitant]
     Route: 065
  25. ASPIRIN [Concomitant]
     Route: 065
  26. VALTREX [Concomitant]
     Route: 065
  27. ALBUTEROL [Concomitant]
     Route: 055
  28. THALOMID [Suspect]
     Indication: MULTIPLE MYELOMA
     Route: 048
     Dates: start: 20101030, end: 20101205
  29. SYMBICORT [Concomitant]
     Route: 055
  30. CALCIUM GLUCONATE [Concomitant]
     Route: 065

REACTIONS (6)
  - HAEMATOCRIT DECREASED [None]
  - HAEMOGLOBIN DECREASED [None]
  - RENAL FAILURE [None]
  - CARDIAC ARREST [None]
  - MULTIPLE MYELOMA [None]
  - SYNCOPE [None]
